FAERS Safety Report 22333825 (Version 1)
Quarter: 2023Q2

REPORT INFORMATION
  Report Type: Spontaneous
  Country: US (occurrence: US)
  Receive Date: 20230517
  Receipt Date: 20230517
  Transmission Date: 20230721
  Serious: No
  Sender: FDA-Public Use
  Company Number: US-AIMMUNE THERAPEUTICS, INC.-2022AIMT02796

PATIENT

DRUGS (5)
  1. PALFORZIA [Suspect]
     Active Substance: PEANUT
     Indication: Food allergy
     Dosage: IDE (0.5MG-6MG), ONCE
     Route: 048
  2. PALFORZIA [Suspect]
     Active Substance: PEANUT
     Dosage: 12 MG, 1X/DAY
     Route: 048
     Dates: start: 20221111
  3. PALFORZIA [Suspect]
     Active Substance: PEANUT
     Dosage: 12 MG, ONCE, LSAT DOSE PRIOR TO EVENT
     Route: 048
  4. PALFORZIA [Suspect]
     Active Substance: PEANUT
     Dosage: 6 MG, 1X/DAY, DECREASED DOSE
     Route: 048
  5. EPIPEN [Concomitant]
     Active Substance: EPINEPHRINE
     Indication: Product used for unknown indication
     Dosage: 0.3 MG

REACTIONS (3)
  - Wheezing [Unknown]
  - Dyspnoea [Unknown]
  - Abdominal pain [Unknown]
